FAERS Safety Report 9528284 (Version 1)
Quarter: 2013Q3

REPORT INFORMATION
  Report Type: Spontaneous
  Country: US (occurrence: US)
  Receive Date: 20130917
  Receipt Date: 20130917
  Transmission Date: 20140515
  Serious: Yes (Hospitalization)
  Sender: FDA-Public Use
  Company Number: US-BAYER-2013-112022

PATIENT
  Age: 36 Year
  Sex: Female
  Weight: 84.35 kg

DRUGS (12)
  1. YASMIN [Suspect]
     Dosage: UNK
     Dates: start: 200612, end: 200702
  2. YAZ [Suspect]
     Dosage: UNK
     Dates: start: 200612, end: 200702
  3. SYNTHROID [Concomitant]
     Dosage: 0.075 MG, UNK
     Route: 048
  4. EFFEXOR [Concomitant]
     Indication: ANXIETY
     Dosage: 75 MG, DAILY
     Route: 048
  5. FLAGYL [Concomitant]
  6. ERYTHROMYCIN [Concomitant]
  7. ORTHO TRI-CYCLEN [Concomitant]
  8. HYCOTUSS [Concomitant]
     Indication: COUGH
     Dosage: 5 MG, UNK
  9. COLACE [Concomitant]
     Dosage: 100 MG, UNK
  10. FERROUS SULFATE [Concomitant]
     Dosage: 160 MG, UNK
  11. PEPCID [Concomitant]
     Dosage: 30 MG, UNK
  12. TYLENOL #3 [Concomitant]

REACTIONS (5)
  - Pulmonary embolism [None]
  - Pain [None]
  - Injury [None]
  - Emotional distress [None]
  - Pain [None]
